FAERS Safety Report 16314249 (Version 6)
Quarter: 2020Q1

REPORT INFORMATION
  Report Type: Report from Study
  Country: SG (occurrence: SG)
  Receive Date: 20190515
  Receipt Date: 20200207
  Transmission Date: 20200409
  Serious: Yes (Hospitalization)
  Sender: FDA-Public Use
  Company Number: SG-EMD SERONO-E2B_90067970

PATIENT
  Age: 59 Year
  Sex: Female
  Weight: 54 kg

DRUGS (17)
  1. FLUTICASONE FUROATE [Concomitant]
     Active Substance: FLUTICASONE FUROATE
     Indication: ASTHMA
     Dosage: 27.5 UG, AS NEEDED (PRN)
     Route: 045
     Dates: start: 201504
  2. LORATADINE. [Concomitant]
     Active Substance: LORATADINE
     Indication: HYPERSENSITIVITY
     Dosage: 10 MG, 1X/DAY (OM)
     Route: 048
     Dates: start: 20190412
  3. BINIMETINIB [Suspect]
     Active Substance: BINIMETINIB
     Indication: PANCREATIC CARCINOMA
     Dosage: 30 MG, 2X/DAY, DOUBLET ARM COHORT 4
     Route: 048
     Dates: start: 20190410, end: 20190503
  4. PARACETAMOL [Concomitant]
     Active Substance: ACETAMINOPHEN
     Indication: PAIN
     Dosage: 1 G, AS NEEDED (PRN)
     Route: 048
     Dates: start: 201509
  5. PREGABALIN. [Concomitant]
     Active Substance: PREGABALIN
     Indication: HYPOAESTHESIA
     Route: 048
     Dates: start: 20170421
  6. SENNOSIDE A+B [Concomitant]
     Active Substance: SENNOSIDES A AND B
     Indication: CONSTIPATION
     Dosage: 2 TABLETS, ON, PRN
     Route: 048
     Dates: start: 201509
  7. DOMPERIDONE [Concomitant]
     Active Substance: DOMPERIDONE
     Indication: NAUSEA
     Dosage: 10 MG, 3X/DAY, PRN
     Route: 048
     Dates: start: 20190125
  8. WHITE SOFT PARAFFIN [Concomitant]
     Active Substance: PARAFFIN
     Indication: DRY SKIN
     Dosage: 1 APPLICATION, 2X/DAY, OINTMENT BP, PRN
     Route: 061
     Dates: start: 20170112
  9. BECLOMETASONE DIPROPIONATE [Concomitant]
     Active Substance: BECLOMETHASONE DIPROPIONATE
     Indication: ASTHMA
     Dosage: 50 UG, AS NEEDED (PRN)
     Route: 045
     Dates: start: 201504
  10. AVELUMAB [Suspect]
     Active Substance: AVELUMAB
     Indication: PANCREATIC CARCINOMA
     Dosage: 800 MG, EVERY 2 WEEKS (Q2W); DOUBLET ARM COHORT 4
     Route: 042
     Dates: start: 20190410, end: 20190503
  11. LACTULOSE. [Concomitant]
     Active Substance: LACTULOSE
     Indication: CONSTIPATION
     Dosage: 10 ML, 3X/DAY (TDS), PRN
     Route: 048
     Dates: start: 201509
  12. PARACETAMOL [Concomitant]
     Active Substance: ACETAMINOPHEN
     Indication: PYREXIA
  13. DOMPERIDONE [Concomitant]
     Active Substance: DOMPERIDONE
     Indication: VOMITING
  14. NIFEDIPINE LA [Concomitant]
     Indication: HYPERTENSION
     Dosage: 30 MG, OM
     Route: 048
     Dates: start: 201504
  15. OMEPRAZOLE. [Concomitant]
     Active Substance: OMEPRAZOLE
     Indication: GASTRIC DISORDER
     Dosage: 40 MG, 2X/DAY (BD)
     Route: 048
     Dates: start: 201509
  16. TEARS NATURALE II                  /06129701/ [Concomitant]
     Indication: DRY EYE
     Dosage: 1 GTT, 4X/DAY, PRN
     Route: 047
     Dates: start: 201608
  17. PANCREATIN [Concomitant]
     Active Substance: PANCRELIPASE
     Indication: DYSPEPSIA
     Dosage: 150 MG, 3X/DAY (TDS)
     Route: 048
     Dates: start: 20170301

REACTIONS (1)
  - Mucosal inflammation [Recovered/Resolved]

NARRATIVE: CASE EVENT DATE: 20190426
